FAERS Safety Report 25105208 (Version 1)
Quarter: 2025Q1

REPORT INFORMATION
  Report Type: Spontaneous
  Country: US (occurrence: US)
  Receive Date: 20250321
  Receipt Date: 20250321
  Transmission Date: 20250409
  Serious: Yes (Hospitalization)
  Sender: MYLAN
  Company Number: US-MYLANLABS-2025M1023431

PATIENT
  Age: 8 Year
  Sex: Male

DRUGS (28)
  1. LATANOPROST [Suspect]
     Active Substance: LATANOPROST
     Indication: Glaucoma
     Dosage: UNK, HS (ONCE AT NIGHT)
  2. LATANOPROST [Suspect]
     Active Substance: LATANOPROST
     Dosage: UNK, HS (ONCE AT NIGHT)
     Route: 061
  3. LATANOPROST [Suspect]
     Active Substance: LATANOPROST
     Dosage: UNK, HS (ONCE AT NIGHT)
     Route: 061
  4. LATANOPROST [Suspect]
     Active Substance: LATANOPROST
     Dosage: UNK, HS (ONCE AT NIGHT)
  5. TIMOLOL [Suspect]
     Active Substance: TIMOLOL
     Indication: Glaucoma
     Dosage: UNK, BID (TWICE DAILY)
  6. TIMOLOL [Suspect]
     Active Substance: TIMOLOL
     Dosage: UNK, BID (TWICE DAILY)
     Route: 061
  7. TIMOLOL [Suspect]
     Active Substance: TIMOLOL
     Dosage: UNK, BID (TWICE DAILY)
     Route: 061
  8. TIMOLOL [Suspect]
     Active Substance: TIMOLOL
     Dosage: UNK, BID (TWICE DAILY)
  9. ACETAZOLAMIDE [Suspect]
     Active Substance: ACETAZOLAMIDE
     Indication: Glaucoma
     Dosage: 5 MILLIGRAM/KILOGRAM, TID (THREE TIMES DAILY)
  10. ACETAZOLAMIDE [Suspect]
     Active Substance: ACETAZOLAMIDE
     Dosage: 5 MILLIGRAM/KILOGRAM, TID (THREE TIMES DAILY)
     Route: 048
  11. ACETAZOLAMIDE [Suspect]
     Active Substance: ACETAZOLAMIDE
     Dosage: 5 MILLIGRAM/KILOGRAM, TID (THREE TIMES DAILY)
     Route: 048
  12. ACETAZOLAMIDE [Suspect]
     Active Substance: ACETAZOLAMIDE
     Dosage: 5 MILLIGRAM/KILOGRAM, TID (THREE TIMES DAILY)
  13. BEVACIZUMAB [Suspect]
     Active Substance: BEVACIZUMAB
     Indication: Glaucoma
  14. BEVACIZUMAB [Suspect]
     Active Substance: BEVACIZUMAB
  15. BEVACIZUMAB [Suspect]
     Active Substance: BEVACIZUMAB
  16. BEVACIZUMAB [Suspect]
     Active Substance: BEVACIZUMAB
  17. ATROPINE [Suspect]
     Active Substance: ATROPINE
     Indication: Glaucoma
     Dosage: UNK, TID, THREE TIMES DAILY, DROPS
  18. ATROPINE [Suspect]
     Active Substance: ATROPINE
     Dosage: UNK, TID, THREE TIMES DAILY, DROPS
     Route: 061
  19. ATROPINE [Suspect]
     Active Substance: ATROPINE
     Dosage: UNK, TID, THREE TIMES DAILY, DROPS
     Route: 061
  20. ATROPINE [Suspect]
     Active Substance: ATROPINE
     Dosage: UNK, TID, THREE TIMES DAILY, DROPS
  21. APRACLONIDINE [Suspect]
     Active Substance: APRACLONIDINE HYDROCHLORIDE
     Indication: Glaucoma
     Dosage: UNK, TID, THREE TIMES DAILY, DROPS
  22. APRACLONIDINE [Suspect]
     Active Substance: APRACLONIDINE HYDROCHLORIDE
     Dosage: UNK, TID, THREE TIMES DAILY, DROPS
     Route: 061
  23. APRACLONIDINE [Suspect]
     Active Substance: APRACLONIDINE HYDROCHLORIDE
     Dosage: UNK, TID, THREE TIMES DAILY, DROPS
     Route: 061
  24. APRACLONIDINE [Suspect]
     Active Substance: APRACLONIDINE HYDROCHLORIDE
     Dosage: UNK, TID, THREE TIMES DAILY, DROPS
  25. MANNITOL [Suspect]
     Active Substance: MANNITOL
     Indication: Glaucoma
     Dosage: UNK, QD (1 G/KG DAILY)
  26. MANNITOL [Suspect]
     Active Substance: MANNITOL
     Dosage: UNK, QD (1 G/KG DAILY)
     Route: 042
  27. MANNITOL [Suspect]
     Active Substance: MANNITOL
     Dosage: UNK, QD (1 G/KG DAILY)
     Route: 042
  28. MANNITOL [Suspect]
     Active Substance: MANNITOL
     Dosage: UNK, QD (1 G/KG DAILY)

REACTIONS (2)
  - Drug ineffective [Unknown]
  - Off label use [Unknown]
